FAERS Safety Report 8633621 (Version 2)
Quarter: 2013Q2

REPORT INFORMATION
  Report Type: Spontaneous
  Country: US (occurrence: US)
  Receive Date: 20120625
  Receipt Date: 20130401
  Transmission Date: 20140414
  Serious: Yes (Hospitalization, Other)
  Sender: FDA-Public Use
  Company Number: US-ASTRAZENECA-2012SE40329

PATIENT
  Age: 52 Year
  Sex: Male
  Weight: 84.4 kg

DRUGS (6)
  1. LISINOPRIL [Suspect]
     Indication: HYPERTENSION
     Route: 048
  2. CRESTOR [Suspect]
     Route: 048
  3. PLAVIX [Concomitant]
     Route: 048
  4. ASPIRIN [Concomitant]
     Route: 048
  5. ZOCOR [Concomitant]
     Route: 048
  6. METOPROLOL TARTRATE [Concomitant]
     Route: 048

REACTIONS (19)
  - Bundle branch block right [Unknown]
  - Angina pectoris [Unknown]
  - Acute coronary syndrome [Unknown]
  - Myocardial infarction [Unknown]
  - Myocardial infarction [Unknown]
  - Coronary artery disease [Unknown]
  - Ventricular extrasystoles [Unknown]
  - Hypertension [Unknown]
  - Hyperlipidaemia [Unknown]
  - Personality disorder [Unknown]
  - Anxiety [Unknown]
  - Chest discomfort [Unknown]
  - Gouty arthritis [Unknown]
  - Myocardial ischaemia [Unknown]
  - Ligament sprain [Unknown]
  - Ejection fraction decreased [Unknown]
  - Anger [Unknown]
  - Gastrooesophageal reflux disease [Unknown]
  - Blood cholesterol increased [Unknown]
